FAERS Safety Report 10565825 (Version 1)
Quarter: 2014Q4

REPORT INFORMATION
  Report Type: Report from Study
  Country: TH (occurrence: TH)
  Receive Date: 20141105
  Receipt Date: 20141105
  Transmission Date: 20150529
  Serious: Yes (Death)
  Sender: FDA-Public Use
  Company Number: TH-SA-2014SA152139

PATIENT
  Sex: Male

DRUGS (2)
  1. CABAZITAXEL [Suspect]
     Active Substance: CABAZITAXEL
     Indication: PROSTATE CANCER METASTATIC
     Route: 042
  2. G-CSF [Concomitant]
     Active Substance: FILGRASTIM
     Indication: PROPHYLAXIS

REACTIONS (1)
  - Death [Fatal]
